FAERS Safety Report 4809267-9 (Version None)
Quarter: 2005Q4

REPORT INFORMATION
  Report Type: 
  Country: None (occurrence: None)
  Receive Date: 20051021
  Receipt Date: 20051013
  Transmission Date: 20060501
  Serious: Yes (Hospitalization)
  Sender: FDA-Public Use
  Company Number: GXKR2005BR01821

PATIENT
  Age: 39 Year
  Sex: Female
  Weight: 82 kg

DRUGS (4)
  1. ALPRAZOLAM [Suspect]
     Indication: DEPRESSION
     Dosage: 2 MG, TID, ORAL
     Route: 048
     Dates: start: 20050201
  2. CIPROFLOXACIN [Suspect]
     Indication: PNEUMONIA
     Dosage: 500 MG, BID, ORAL
     Route: 048
     Dates: start: 20050701, end: 20050701
  3. CYMBALTA [Concomitant]
  4. ROHYPNOL (FLUNITRAZEPAM) [Concomitant]

REACTIONS (5)
  - CONVULSION [None]
  - DRUG INTERACTION [None]
  - HEMIPLEGIA [None]
  - PHOTOPSIA [None]
  - TREMOR [None]
